FAERS Safety Report 16034484 (Version 1)
Quarter: 2019Q1

REPORT INFORMATION
  Report Type: Spontaneous
  Country: US (occurrence: US)
  Receive Date: 20190305
  Receipt Date: 20190305
  Transmission Date: 20190418
  Serious: No
  Sender: FDA-Public Use
  Company Number: US-PFIZER INC-2018528077

PATIENT
  Age: 65 Year
  Sex: Male

DRUGS (1)
  1. VIAGRA [Suspect]
     Active Substance: SILDENAFIL CITRATE
     Dosage: 25 MG, AS NEEDED [TAKE 1/4 TABLET=25 MG BY ORAL ROUTE EVERY DAY AS NEEDED]
     Route: 048

REACTIONS (1)
  - Vision blurred [Recovered/Resolved]
